FAERS Safety Report 8090995-X (Version None)
Quarter: 2012Q1

REPORT INFORMATION
  Report Type: 
  Country: None (occurrence: None)
  Receive Date: 20120128
  Receipt Date: 20110729
  Transmission Date: 20120608
  Serious: No
  Sender: FDA-Public Use
  Company Number: US-ABBOTT-11P-163-0842993-00

PATIENT
  Age: 48 Year
  Sex: Female

DRUGS (9)
  1. ATIVAN [Concomitant]
     Indication: PRODUCT USED FOR UNKNOWN INDICATION
  2. MIGRANAL SPRAY [Concomitant]
     Indication: PRODUCT USED FOR UNKNOWN INDICATION
  3. CYMBALTA [Concomitant]
     Indication: PRODUCT USED FOR UNKNOWN INDICATION
  4. MORPHINE [Concomitant]
     Indication: PRODUCT USED FOR UNKNOWN INDICATION
  5. HUMIRA [Suspect]
     Indication: PUSTULAR PSORIASIS
     Dates: start: 20110720
  6. HYDROXYZINE [Concomitant]
     Indication: PRODUCT USED FOR UNKNOWN INDICATION
  7. TOPAMAX [Concomitant]
     Indication: PRODUCT USED FOR UNKNOWN INDICATION
  8. VIVELLE-DOT [Concomitant]
     Indication: PRODUCT USED FOR UNKNOWN INDICATION
  9. HYDROCODONE BITARTRATE [Concomitant]
     Indication: BREAKTHROUGH PAIN
     Dosage: 10-325MG

REACTIONS (2)
  - PAIN IN EXTREMITY [None]
  - NAUSEA [None]
